FAERS Safety Report 21788154 (Version 1)
Quarter: 2022Q4

REPORT INFORMATION
  Report Type: Spontaneous
  Country: GB (occurrence: GB)
  Receive Date: 20221228
  Receipt Date: 20221228
  Transmission Date: 20230113
  Serious: Yes (Other)
  Sender: FDA-Public Use
  Company Number: None

PATIENT
  Age: 67 Year
  Sex: Male
  Weight: 82 kg

DRUGS (3)
  1. ALLOPURINOL [Interacting]
     Active Substance: ALLOPURINOL
     Indication: Gout
     Dosage: IN THE MORNING, INITIAL 300MG DOSE REDUCED TO 100MG AFTER 5 WEEKS OF?CONTINUOUS DIARRHOEA
     Dates: start: 20130101, end: 20221130
  2. COVID-19 VACCINE NOS [Interacting]
     Active Substance: COVID-19 VACCINE NOS
     Indication: COVID-19 immunisation
     Dosage: DOSE 4
     Dates: start: 20220922, end: 20220922
  3. PFIZER-BIONTECH COVID-19 VACCINE [Interacting]
     Active Substance: TOZINAMERAN
     Indication: COVID-19 immunisation

REACTIONS (16)
  - Drug interaction [Unknown]
  - Fatigue [Recovered/Resolved]
  - Diarrhoea [Recovered/Resolved]
  - Migraine with aura [Unknown]
  - Hypoaesthesia [Recovering/Resolving]
  - Breast pain [Recovering/Resolving]
  - Gynaecomastia [Unknown]
  - Pain in extremity [Unknown]
  - Photophobia [Recovered/Resolved]
  - Paraesthesia [Recovering/Resolving]
  - Breast swelling [Not Recovered/Not Resolved]
  - Sensory disturbance [Not Recovered/Not Resolved]
  - Lethargy [Recovered/Resolved]
  - Malaise [Recovered/Resolved]
  - Diplopia [Recovering/Resolving]
  - Skin exfoliation [Unknown]

NARRATIVE: CASE EVENT DATE: 20130101
